FAERS Safety Report 5705767-8 (Version None)
Quarter: 2008Q2

REPORT INFORMATION
  Report Type: 
  Country: None (occurrence: None)
  Receive Date: 20080415
  Receipt Date: 20070409
  Transmission Date: 20081010
  Serious: Yes (Hospitalization)
  Sender: FDA-Public Use
  Company Number: CN-ASTRAZENECA-2008AP01459

PATIENT
  Age: 71 Year
  Sex: Male

DRUGS (3)
  1. SEROQUEL [Suspect]
     Indication: SCHIZOPHRENIA
     Route: 048
     Dates: start: 20080225, end: 20080227
  2. SEROQUEL [Suspect]
     Route: 048
     Dates: start: 20080405
  3. MADOPAR [Concomitant]
     Indication: PARKINSON'S DISEASE
     Dosage: STARTED IN 2003 OR 2004
     Route: 048

REACTIONS (3)
  - DRUG INEFFECTIVE [None]
  - GAIT DISTURBANCE [None]
  - SOMNOLENCE [None]
